FAERS Safety Report 15150529 (Version 1)
Quarter: 2018Q3

REPORT INFORMATION
  Report Type: Spontaneous
  Country: US (occurrence: US)
  Receive Date: 20180619
  Receipt Date: 20180619
  Transmission Date: 20181010
  Serious: Yes (Death)
  Sender: FDA-Public Use
  Company Number: None

PATIENT
  Age: 71 Year
  Sex: Female

DRUGS (1)
  1. PROLIA [Suspect]
     Active Substance: DENOSUMAB
     Indication: OSTEOPOROSIS
     Dosage: MG  :DAYS 1,8, AND 15;   PO?
     Route: 048
     Dates: start: 20170726

REACTIONS (2)
  - Aplastic anaemia [None]
  - Infection [None]

NARRATIVE: CASE EVENT DATE: 20180613
